FAERS Safety Report 5218858-5 (Version None)
Quarter: 2007Q1

REPORT INFORMATION
  Report Type: 
  Country: None (occurrence: None)
  Receive Date: 20070125
  Receipt Date: 20070116
  Transmission Date: 20070707
  Serious: Yes (Hospitalization)
  Sender: FDA-Public Use
  Company Number: AT-JNJFOC-20070104367

PATIENT
  Sex: Female

DRUGS (9)
  1. RISPERDAL [Suspect]
     Route: 065
     Dates: start: 20061113
  2. RISPERDAL [Suspect]
     Indication: DRUG USE FOR UNKNOWN INDICATION
     Route: 065
     Dates: start: 20061113
  3. TRUXAL [Interacting]
     Indication: DRUG USE FOR UNKNOWN INDICATION
     Route: 065
     Dates: start: 20061113
  4. TEGRETOL [Interacting]
     Route: 065
     Dates: start: 20060821, end: 20061122
  5. TEGRETOL [Interacting]
     Indication: DRUG USE FOR UNKNOWN INDICATION
     Route: 065
     Dates: start: 20060821, end: 20061122
  6. DEPAKENE [Interacting]
     Route: 065
     Dates: start: 20061113
  7. DEPAKENE [Interacting]
     Indication: DRUG USE FOR UNKNOWN INDICATION
     Route: 065
     Dates: start: 20061113
  8. OXAZEPAM [Interacting]
     Indication: DRUG USE FOR UNKNOWN INDICATION
     Route: 065
     Dates: start: 20060823
  9. THYREX [Interacting]
     Indication: DRUG USE FOR UNKNOWN INDICATION
     Route: 065

REACTIONS (2)
  - DRUG INTERACTION [None]
  - MANIA [None]
